FAERS Safety Report 12362946 (Version 4)
Quarter: 2016Q3

REPORT INFORMATION
  Report Type: Report from Study
  Country: FR (occurrence: FR)
  Receive Date: 20160512
  Receipt Date: 20160824
  Transmission Date: 20161109
  Serious: Yes (Death, Other)
  Sender: FDA-Public Use
  Company Number: FR-TEVA-658502ISR

PATIENT
  Age: 66 Year
  Sex: Female

DRUGS (4)
  1. ETOPOSIDE. [Suspect]
     Active Substance: ETOPOSIDE
     Indication: DIFFUSE LARGE B-CELL LYMPHOMA
     Dosage: 1600 MG/M2 (TOTAL DOSE) TWICE DAILY DIVIDED OVER 4 D FROM DAY -6 TO -3. CYCLICAL
     Route: 042
  2. ARA-C [Suspect]
     Active Substance: CYTARABINE
     Indication: DIFFUSE LARGE B-CELL LYMPHOMA
     Dosage: 2000 MG/M2 (TOTAL DOSE) TWICE DAILY DIVIDED OVER 4 DAY FROM DAY -6 TO -3. CYCLICAL
     Route: 042
  3. CCNU [Suspect]
     Active Substance: LOMUSTINE
     Indication: DIFFUSE LARGE B-CELL LYMPHOMA
     Dosage: 200 MG/M2 DAILY; 200 MG/M2 P.O. ON DAY -7
     Route: 048
  4. MELPHALAN [Suspect]
     Active Substance: MELPHALAN
     Indication: DIFFUSE LARGE B-CELL LYMPHOMA
     Dosage: 140 MG/M2 DAILY; 140 MG/M2 ON DAY -2
     Route: 042

REACTIONS (4)
  - Multiple organ dysfunction syndrome [Fatal]
  - Mucosal inflammation [Fatal]
  - Pneumonia cryptococcal [Fatal]
  - Venoocclusive liver disease [Fatal]
